FAERS Safety Report 7316269-X (Version None)
Quarter: 2011Q1

REPORT INFORMATION
  Report Type: 
  Country: None (occurrence: None)
  Receive Date: 20110225
  Receipt Date: 20110212
  Transmission Date: 20110831
  Serious: Yes (Other)
  Sender: FDA-Public Use
  Company Number: CN-CELGENEUS-035-20785-11022187

PATIENT

DRUGS (3)
  1. VINORELBINE [Concomitant]
     Route: 051
  2. THALIDOMIDE [Suspect]
     Route: 048
  3. CISPLATIN [Concomitant]
     Route: 051

REACTIONS (14)
  - RADIATION OESOPHAGITIS [None]
  - HAEMOGLOBIN DECREASED [None]
  - WHITE BLOOD CELL COUNT DECREASED [None]
  - GASTROINTESTINAL DISORDER [None]
  - NAUSEA [None]
  - VOMITING [None]
  - ALOPECIA [None]
  - CONSTIPATION [None]
  - PHLEBITIS [None]
  - PLATELETCRIT DECREASED [None]
  - STOMATITIS [None]
  - DIARRHOEA [None]
  - RADIATION PNEUMONITIS [None]
  - RASH [None]
